FAERS Safety Report 24656543 (Version 1)
Quarter: 2024Q4

REPORT INFORMATION
  Report Type: Spontaneous
  Country: US (occurrence: US)
  Receive Date: 20241124
  Receipt Date: 20241124
  Transmission Date: 20250115
  Serious: Yes (Other)
  Sender: BRISTOL-MYERS SQUIBB COMPANY
  Company Number: US-BRISTOL-MYERS SQUIBB COMPANY-2024-180825

PATIENT
  Age: 57 Year

DRUGS (4)
  1. SPRYCEL [Suspect]
     Active Substance: DASATINIB
     Indication: Product used for unknown indication
     Route: 048
     Dates: start: 20160204
  2. SPRYCEL [Suspect]
     Active Substance: DASATINIB
     Dosage: 80 MG EVERY OTHER DAY
     Route: 048
     Dates: end: 201611
  3. SPRYCEL [Suspect]
     Active Substance: DASATINIB
     Route: 048
     Dates: start: 20170905
  4. SPRYCEL [Suspect]
     Active Substance: DASATINIB
     Dosage: 50 MG M-F (MONDAY TO FRIDAY)
     Route: 048

REACTIONS (5)
  - Myelosuppression [Unknown]
  - Nausea [Unknown]
  - Vomiting [Unknown]
  - Fatigue [Unknown]
  - Off label use [Unknown]

NARRATIVE: CASE EVENT DATE: 20160101
